FAERS Safety Report 24239505 (Version 2)
Quarter: 2024Q4

REPORT INFORMATION
  Report Type: Spontaneous
  Country: US (occurrence: US)
  Receive Date: 20240822
  Receipt Date: 20241125
  Transmission Date: 20250114
  Serious: No
  Sender: AVADEL CNS PHARMACEUTICALS, LLC
  Company Number: US-AVADEL CNS PHARMACEUTICALS, LLC-2024AVA01092

PATIENT
  Sex: Female

DRUGS (5)
  1. LUMRYZ [Suspect]
     Active Substance: SODIUM OXYBATE
     Indication: Narcolepsy
     Dosage: 9 G, ONCE NIGHTLY
     Dates: start: 202309
  2. LUMRYZ [Suspect]
     Active Substance: SODIUM OXYBATE
     Indication: Cataplexy
  3. GLUCOSAMINE + CHONDROITIN [CHONDROITIN SULFATE SODIUM;GLUCOSAMINE SULF [Concomitant]
  4. CALCIUM CITRATE;COLECALCIFEROL;MAGNESIUM [Concomitant]
  5. CELEBRATE MULTI-COMPLETE 45 WITH IRON VITAMIN [Concomitant]

REACTIONS (15)
  - Scratch [Recovered/Resolved]
  - Wound infection [Recovered/Resolved]
  - Tooth fracture [Recovered/Resolved]
  - Stress [Not Recovered/Not Resolved]
  - Blood iron decreased [Recovered/Resolved]
  - Somnambulism [Recovering/Resolving]
  - Fall [Recovered/Resolved]
  - Enuresis [Recovered/Resolved]
  - Weight decreased [Not Recovered/Not Resolved]
  - Nocturia [Unknown]
  - Head injury [Unknown]
  - Contusion [Unknown]
  - Injury [Unknown]
  - Wrong technique in product usage process [Recovered/Resolved]
  - Product dose omission issue [Not Recovered/Not Resolved]

NARRATIVE: CASE EVENT DATE: 20230101
